FAERS Safety Report 11511113 (Version 1)
Quarter: 2015Q3

REPORT INFORMATION
  Report Type: Spontaneous
  Country: US (occurrence: US)
  Receive Date: 20150915
  Receipt Date: 20150915
  Transmission Date: 20151125
  Serious: Yes (Other)
  Sender: FDA-Public Use
  Company Number: US-BAUSCH-BL-2015-019845

PATIENT
  Age: 47 Year
  Sex: Male

DRUGS (1)
  1. ADVANCED EYE RELIEF/EYE WASH [Suspect]
     Active Substance: WATER
     Indication: EYE IRRIGATION
     Dosage: AS NEEDED
     Route: 047
     Dates: start: 20150813, end: 20150813

REACTIONS (5)
  - Erythema [Recovered/Resolved]
  - Epilepsy [Unknown]
  - Eye swelling [Recovered/Resolved]
  - Pruritus [Recovered/Resolved]
  - Skin disorder [Recovered/Resolved]

NARRATIVE: CASE EVENT DATE: 20150813
